FAERS Safety Report 7589431-9 (Version None)
Quarter: 2011Q3

REPORT INFORMATION
  Report Type: 
  Country: None (occurrence: None)
  Receive Date: 20110705
  Receipt Date: 20110627
  Transmission Date: 20111222
  Serious: Yes (Hospitalization, Other)
  Sender: FDA-Public Use
  Company Number: JP-JNJFOC-20110509507

PATIENT
  Sex: Male

DRUGS (9)
  1. RISPERDAL [Suspect]
     Route: 048
     Dates: start: 20110512, end: 20110513
  2. PANTOL (PANTHENOL) [Concomitant]
     Route: 041
  3. RISPERDAL [Suspect]
     Indication: RESTLESSNESS
     Dosage: AS NECESSARY
     Route: 048
     Dates: start: 20110509
  4. URIEF [Concomitant]
     Route: 048
  5. UNKNOWN MEDICATION [Concomitant]
     Indication: PROSTATIC DISORDER
     Route: 065
  6. ASPIRIN [Concomitant]
     Route: 048
  7. LANSORAL [Concomitant]
     Route: 048
  8. VOGLIBOSE [Concomitant]
     Route: 048
  9. METFORMIN HCL [Concomitant]
     Indication: DIABETES MELLITUS
     Route: 048

REACTIONS (1)
  - ILEUS PARALYTIC [None]
